FAERS Safety Report 7225813-2 (Version None)
Quarter: 2011Q1

REPORT INFORMATION
  Report Type: 
  Country: None (occurrence: None)
  Receive Date: 20110113
  Receipt Date: 20101227
  Transmission Date: 20110831
  Serious: No
  Sender: FDA-Public Use
  Company Number: US-B.I. PHARMACEUTICALS,INC./RIDGEFIELD-2011-BP-00183BP

PATIENT
  Sex: Female

DRUGS (8)
  1. PRADAXA [Suspect]
     Indication: ATRIAL FIBRILLATION
  2. LOSARTAN [Concomitant]
     Indication: HYPERTENSION
  3. AMIODARONE [Concomitant]
     Indication: ATRIAL FIBRILLATION
  4. NAMENDA [Concomitant]
     Indication: MEMORY IMPAIRMENT
  5. EXELON [Concomitant]
     Indication: MEMORY IMPAIRMENT
  6. PRADAXA [Suspect]
     Indication: ANTICOAGULANT THERAPY
     Dosage: 300 MG
     Route: 048
     Dates: start: 20101214, end: 20101221
  7. CALCIUM [Concomitant]
     Indication: PROPHYLAXIS
  8. ALENDRONATE [Concomitant]
     Indication: OSTEOPOROSIS

REACTIONS (3)
  - OESOPHAGEAL INJURY [None]
  - CHEST PAIN [None]
  - LUNG INFILTRATION [None]
